FAERS Safety Report 10487325 (Version 1)
Quarter: 2014Q4

REPORT INFORMATION
  Report Type: Spontaneous
  Country: ES (occurrence: ES)
  Receive Date: 20141001
  Receipt Date: 20141001
  Transmission Date: 20150528
  Serious: Yes (Death, Hospitalization)
  Sender: FDA-Public Use
  Company Number: PHHY2014ES125697

PATIENT
  Age: 55 Year
  Sex: Male

DRUGS (6)
  1. MITOXANTRONE [Suspect]
     Active Substance: MITOXANTRONE HYDROCHLORIDE
     Indication: B PRECURSOR TYPE ACUTE LEUKAEMIA
  2. FLUDARABINE [Suspect]
     Active Substance: FLUDARABINE PHOSPHATE
     Indication: B PRECURSOR TYPE ACUTE LEUKAEMIA
  3. IDARUBICIN [Suspect]
     Active Substance: IDARUBICIN
     Indication: B PRECURSOR TYPE ACUTE LEUKAEMIA
  4. CYTARABINE. [Suspect]
     Active Substance: CYTARABINE
     Indication: B PRECURSOR TYPE ACUTE LEUKAEMIA
  5. G-CSF [Suspect]
     Active Substance: FILGRASTIM
     Indication: B PRECURSOR TYPE ACUTE LEUKAEMIA
  6. FLUCONAZOLE. [Concomitant]
     Active Substance: FLUCONAZOLE
     Indication: PROPHYLAXIS
     Dosage: 200 MG, PER DAY

REACTIONS (9)
  - Depressed level of consciousness [Unknown]
  - Fungal infection [Unknown]
  - Septic shock [Fatal]
  - Escherichia infection [Recovered/Resolved]
  - Body temperature increased [Unknown]
  - Pyrexia [Recovered/Resolved]
  - Cough [Unknown]
  - Neutropenia [Recovered/Resolved]
  - Haemodynamic instability [Unknown]
